FAERS Safety Report 8905755 (Version 1)
Quarter: 2012Q4

REPORT INFORMATION
  Report Type: 
  Country: US (occurrence: US)
  Receive Date: 20121113
  Receipt Date: 20121113
  Transmission Date: 20130627
  Serious: No
  Sender: FDA-Public Use
  Company Number: US-ASTRAZENECA-2012SE84726

PATIENT
  Age: 6 Month
  Sex: Male
  Weight: 8.2 kg

DRUGS (4)
  1. PULMICORT RESPULES [Suspect]
     Indication: ASTHMA
     Route: 055
  2. ALBUTEROL [Concomitant]
  3. ZANTAC [Concomitant]
  4. ZOFRAN [Concomitant]

REACTIONS (2)
  - Vomiting [Unknown]
  - Incorrect route of drug administration [Unknown]
